FAERS Safety Report 8243489-2 (Version None)
Quarter: 2012Q1

REPORT INFORMATION
  Report Type: 
  Country: None (occurrence: None)
  Receive Date: 20120329
  Receipt Date: 20120322
  Transmission Date: 20120608
  Serious: Yes (Other)
  Sender: FDA-Public Use
  Company Number: PHHY2012CA021238

PATIENT
  Sex: Female

DRUGS (1)
  1. GILENYA [Suspect]
     Indication: RELAPSING-REMITTING MULTIPLE SCLEROSIS
     Dosage: 0.5 MG, QD
     Route: 048
     Dates: start: 20120306

REACTIONS (12)
  - HYPOAESTHESIA [None]
  - BALANCE DISORDER [None]
  - MULTIPLE SCLEROSIS RELAPSE [None]
  - FATIGUE [None]
  - BACK PAIN [None]
  - SPINAL CORD DISORDER [None]
  - VISUAL IMPAIRMENT [None]
  - GAIT DISTURBANCE [None]
  - BREAST PAIN [None]
  - BLOOD PRESSURE FLUCTUATION [None]
  - ASTHENIA [None]
  - OROPHARYNGEAL PAIN [None]
